FAERS Safety Report 23326489 (Version 1)
Quarter: 2023Q4

REPORT INFORMATION
  Report Type: Spontaneous
  Country: US (occurrence: US)
  Receive Date: 20231221
  Receipt Date: 20231221
  Transmission Date: 20240110
  Serious: No
  Sender: FDA-Public Use
  Company Number: US-MYLANLABS-2023M1131011

PATIENT
  Age: 72 Year
  Sex: Male
  Weight: 84.37 kg

DRUGS (1)
  1. LIPITOR [Suspect]
     Active Substance: ATORVASTATIN CALCIUM
     Indication: Blood cholesterol
     Dosage: 1 DOSAGE FORM, QD
     Route: 065
     Dates: start: 202311

REACTIONS (2)
  - Product use complaint [Unknown]
  - Product odour abnormal [Unknown]

NARRATIVE: CASE EVENT DATE: 20231101
